FAERS Safety Report 7429764-X (Version None)
Quarter: 2011Q2

REPORT INFORMATION
  Report Type: 
  Country: None (occurrence: None)
  Receive Date: 20110421
  Receipt Date: 20110415
  Transmission Date: 20111010
  Serious: Yes (Hospitalization)
  Sender: FDA-Public Use
  Company Number: PHHO2011FR06396

PATIENT
  Sex: Female
  Weight: 71 kg

DRUGS (3)
  1. LEVOCARNIL [Concomitant]
     Indication: FATIGUE
     Dosage: UNK
     Dates: start: 20060101
  2. FTY 720 [Suspect]
     Indication: MULTIPLE SCLEROSIS
     Dosage: 0.5 MG, QD
     Route: 048
     Dates: start: 20110222
  3. PAROXETINE HCL [Concomitant]
     Indication: DEPRESSION
     Dosage: UNK
     Dates: start: 20060101

REACTIONS (2)
  - BRADYCARDIA [None]
  - MUSCLE CONTRACTURE [None]
